FAERS Safety Report 20172627 (Version 2)
Quarter: 2021Q4

REPORT INFORMATION
  Report Type: Other
  Country: IN (occurrence: None)
  Receive Date: 20211211
  Receipt Date: 20211226
  Transmission Date: 20220303
  Serious: Yes (Other)
  Sender: FDA-Public Use
  Company Number: IN-ROCHE-2977405

PATIENT
  Age: 70 Year
  Sex: Male

DRUGS (2)
  1. TECENTRIQ [Suspect]
     Active Substance: ATEZOLIZUMAB
     Indication: Lung neoplasm malignant
     Dosage: FREQUENCY- FOR 21 DAYS
     Route: 041
  2. AVASTIN [Suspect]
     Active Substance: BEVACIZUMAB
     Indication: Lung neoplasm malignant
     Dosage: FREQUENCY- FOR 21 DAYS
     Route: 042

REACTIONS (1)
  - Haemorrhoidal haemorrhage [Unknown]
